FAERS Safety Report 8089792-0 (Version None)
Quarter: 2012Q1

REPORT INFORMATION
  Report Type: 
  Country: None (occurrence: None)
  Receive Date: 20120128
  Receipt Date: 20110621
  Transmission Date: 20120608
  Serious: No
  Sender: FDA-Public Use
  Company Number: US-ABBOTT-11P-163-0733709-00

PATIENT
  Sex: Male

DRUGS (5)
  1. XANAX [Concomitant]
     Indication: PANIC ATTACK
  2. CEPHALEXIN [Suspect]
     Indication: LOCAL SWELLING
     Dates: start: 20110601, end: 20110616
  3. XANAX [Concomitant]
     Indication: ANXIETY
  4. HUMIRA [Suspect]
     Indication: ANKYLOSING SPONDYLITIS
     Dates: start: 20090101
  5. ATENOLOL [Concomitant]
     Indication: HYPERTENSION

REACTIONS (6)
  - HEADACHE [None]
  - VOMITING [None]
  - LOCAL SWELLING [None]
  - ABDOMINAL PAIN UPPER [None]
  - DIARRHOEA [None]
  - DYSKINESIA [None]
